FAERS Safety Report 6623975-9 (Version None)
Quarter: 2010Q1

REPORT INFORMATION
  Report Type: 
  Country: None (occurrence: None)
  Receive Date: 20100310
  Receipt Date: 20100224
  Transmission Date: 20100710
  Serious: Yes (Hospitalization)
  Sender: FDA-Public Use
  Company Number: NO-PFIZER INC-2010019744

PATIENT
  Age: 75 Year
  Sex: Female

DRUGS (6)
  1. NEURONTIN [Suspect]
     Indication: PAIN
     Dosage: 300 MG, 2X/DAY
     Route: 048
     Dates: start: 20091112, end: 20091119
  2. COLECALCIFEROL [Concomitant]
     Indication: OSTEOPOROSIS
     Dosage: KALSIUMKARBONAT / KOLEKALSIFEROL
     Route: 048
  3. ALENDRONIC ACID [Concomitant]
     Indication: OSTEOPOROSIS
  4. LEVOTHYROXINE SODIUM [Concomitant]
     Indication: HYPOTHYROIDISM
     Dosage: 100 UG, 1X/DAY
     Route: 048
  5. PREDNISOLON [Concomitant]
     Indication: INFLAMMATION
     Dosage: 5 MG, 1X/DAY
     Route: 048
  6. ZOPICLONE [Concomitant]
     Dosage: 5 MG, 1X/DAY
     Route: 048

REACTIONS (2)
  - BALANCE DISORDER [None]
  - FALL [None]
